FAERS Safety Report 8806718 (Version 2)
Quarter: 2012Q4

REPORT INFORMATION
  Report Type: Spontaneous
  Country: DE (occurrence: None)
  Receive Date: 20120919
  Receipt Date: 20121011
  Transmission Date: 20130627
  Serious: Yes (Other)
  Sender: FDA-Public Use
  Company Number: FK201202684

PATIENT
  Age: 68 Year
  Sex: Female
  Weight: 60 kg

DRUGS (2)
  1. PACLITAXEL [Suspect]
     Indication: OVARIAN CANCER
     Dates: start: 20111110, end: 20120223
  2. CARBOPLATIN [Concomitant]

REACTIONS (2)
  - Neurotoxicity [None]
  - Dyspnoea exertional [None]
